FAERS Safety Report 9339754 (Version 1)
Quarter: 2013Q2

REPORT INFORMATION
  Report Type: Spontaneous
  Country: US (occurrence: US)
  Receive Date: 20130610
  Receipt Date: 20130610
  Transmission Date: 20140414
  Serious: Yes (Other)
  Sender: FDA-Public Use
  Company Number: US-ASTELLAS-2013US003034

PATIENT
  Age: 86 Year
  Sex: Male

DRUGS (12)
  1. XTANDI [Suspect]
     Indication: PROSTATE CANCER
     Dosage: 160 MG, UID/QD
     Route: 065
     Dates: start: 20121008, end: 20121130
  2. XTANDI [Suspect]
     Dosage: 40 MG, BID
     Route: 048
     Dates: start: 20121218
  3. XTANDI [Suspect]
     Dosage: 40 MG, TID
     Route: 048
     Dates: start: 20130115
  4. XTANDI [Suspect]
     Dosage: 40 MG, QID
     Route: 048
     Dates: start: 20130212, end: 20130312
  5. LUPRON [Suspect]
     Indication: PROSTATE CANCER
     Dosage: 22.5 MG, OTHER
     Dates: start: 200502, end: 20130312
  6. LORAZEPAM [Suspect]
     Indication: PRODUCT USED FOR UNKNOWN INDICATION
     Dosage: UNK
     Route: 065
     Dates: end: 20121130
  7. PREDNISONE [Suspect]
     Indication: PROSTATE CANCER
     Dosage: 5 MG, BID
     Route: 048
     Dates: start: 20090604
  8. PREDNISONE [Suspect]
     Dosage: 5 MG, UID/QD
     Route: 048
     Dates: start: 20100204, end: 201210
  9. ZYTIGA [Concomitant]
     Indication: PROSTATE CANCER
     Dosage: UNK
     Route: 065
     Dates: start: 20110706, end: 20121005
  10. ZOMETA [Concomitant]
     Indication: PROSTATE CANCER
     Dosage: 3.5 MG, UNKNOWN/D
     Route: 042
     Dates: start: 20081020, end: 20130312
  11. ZOMETA [Concomitant]
     Indication: METASTASES TO BONE
  12. COUMADIN                           /00014802/ [Concomitant]
     Indication: DEEP VEIN THROMBOSIS
     Dosage: 7.5 MG, UID/QD
     Route: 048
     Dates: start: 201012, end: 20130312

REACTIONS (12)
  - General physical health deterioration [Not Recovered/Not Resolved]
  - Speech disorder [Unknown]
  - Ecchymosis [Unknown]
  - Cachexia [Unknown]
  - Decreased appetite [Not Recovered/Not Resolved]
  - Nausea [Unknown]
  - Muscle spasms [Not Recovered/Not Resolved]
  - Fatigue [Not Recovered/Not Resolved]
  - Cognitive disorder [Unknown]
  - Poor quality sleep [Unknown]
  - Arthralgia [Unknown]
  - Malignant neoplasm progression [Unknown]
